FAERS Safety Report 24747170 (Version 1)
Quarter: 2024Q4

REPORT INFORMATION
  Report Type: Spontaneous
  Country: CN (occurrence: CN)
  Receive Date: 20241218
  Receipt Date: 20241218
  Transmission Date: 20250115
  Serious: Yes (Hospitalization)
  Sender: ALEXION PHARMACEUTICALS
  Company Number: CN-ASTRAZENECA-202412CHN012256CN

PATIENT
  Age: 62 Year
  Weight: 57.5 kg

DRUGS (12)
  1. DAPAGLIFLOZIN [Suspect]
     Active Substance: DAPAGLIFLOZIN
     Indication: Blood glucose increased
     Dosage: 10 MILLIGRAM, QD
  2. DAPAGLIFLOZIN [Suspect]
     Active Substance: DAPAGLIFLOZIN
     Dosage: 10 MILLIGRAM, QD
     Route: 048
  3. DAPAGLIFLOZIN [Suspect]
     Active Substance: DAPAGLIFLOZIN
     Dosage: 10 MILLIGRAM, QD
  4. DAPAGLIFLOZIN [Suspect]
     Active Substance: DAPAGLIFLOZIN
     Dosage: 10 MILLIGRAM, QD
     Route: 048
  5. IRBESARTAN [Concomitant]
     Active Substance: IRBESARTAN
     Indication: Blood pressure increased
     Dosage: 150 MILLIGRAM, QD
     Route: 048
  6. IRBESARTAN [Concomitant]
     Active Substance: IRBESARTAN
     Dosage: 150 MILLIGRAM, QD
  7. ENTECAVIR [Concomitant]
     Active Substance: ENTECAVIR
     Indication: Hepatitis B
     Dosage: 0.5 MILLIGRAM, QD
     Route: 048
  8. ENTECAVIR [Concomitant]
     Active Substance: ENTECAVIR
     Dosage: 0.5 MILLIGRAM, QD
  9. HERBALS [Concomitant]
     Active Substance: HERBALS
     Indication: Chronic kidney disease
     Dosage: 1 GRAM, TID
     Route: 048
  10. HERBALS [Concomitant]
     Active Substance: HERBALS
     Dosage: 1 GRAM, TID
  11. ADEFOVIR DIPIVOXIL [Concomitant]
     Active Substance: ADEFOVIR DIPIVOXIL
     Indication: Chronic hepatitis B
     Dosage: 10 MILLIGRAM, QD
     Route: 048
  12. ADEFOVIR DIPIVOXIL [Concomitant]
     Active Substance: ADEFOVIR DIPIVOXIL
     Dosage: 10 MILLIGRAM, QD

REACTIONS (2)
  - Chest pain [Not Recovered/Not Resolved]
  - Dyspnoea [Not Recovered/Not Resolved]
